FAERS Safety Report 7724465-2 (Version None)
Quarter: 2011Q3

REPORT INFORMATION
  Report Type: 
  Country: None (occurrence: None)
  Receive Date: 20110901
  Receipt Date: 20110825
  Transmission Date: 20111222
  Serious: Yes (Death, Other)
  Sender: FDA-Public Use
  Company Number: US-GLAXOSMITHKLINE-A0914724A

PATIENT
  Sex: Male

DRUGS (2)
  1. ROMIPLOSTIM [Concomitant]
  2. PROMACTA [Suspect]
     Indication: ILL-DEFINED DISORDER

REACTIONS (4)
  - DISEASE PROGRESSION [None]
  - DEATH [None]
  - HAEMATOLOGICAL MALIGNANCY [None]
  - DRUG INEFFECTIVE [None]
